FAERS Safety Report 13737427 (Version 1)
Quarter: 2017Q3

REPORT INFORMATION
  Report Type: Spontaneous
  Country: US (occurrence: US)
  Receive Date: 20170710
  Receipt Date: 20170710
  Transmission Date: 20171127
  Serious: No
  Sender: FDA-Public Use
  Company Number: US-LEXICON PHARMACEUTICALS, INC-17-1606-00465

PATIENT
  Age: 51 Year
  Sex: Female

DRUGS (12)
  1. LOSARTAN. [Concomitant]
     Active Substance: LOSARTAN
  2. MELOXICAM. [Concomitant]
     Active Substance: MELOXICAM
  3. RANITIDINE. [Concomitant]
     Active Substance: RANITIDINE
  4. TRAMADOL. [Concomitant]
     Active Substance: TRAMADOL
  5. TYLENOL [Concomitant]
     Active Substance: ACETAMINOPHEN
  6. TELOTRISTAT ETHYL [Suspect]
     Active Substance: TELOTRISTAT ETHYL
     Indication: CARCINOID SYNDROME
     Route: 048
     Dates: start: 20170511
  7. IBUPROFEN. [Concomitant]
     Active Substance: IBUPROFEN
  8. LIDOCAINE. [Concomitant]
     Active Substance: LIDOCAINE
  9. NORTRIPTYLINE [Concomitant]
     Active Substance: NORTRIPTYLINE
  10. DICLOFENAC [Concomitant]
     Active Substance: DICLOFENAC
  11. BENTYL [Concomitant]
     Active Substance: DICYCLOMINE HYDROCHLORIDE
  12. LOTRONEX [Concomitant]
     Active Substance: ALOSETRON HYDROCHLORIDE

REACTIONS (1)
  - Headache [Not Recovered/Not Resolved]

NARRATIVE: CASE EVENT DATE: 20170511
